FAERS Safety Report 8176654-3 (Version None)
Quarter: 2012Q1

REPORT INFORMATION
  Report Type: 
  Country: None (occurrence: None)
  Receive Date: 20120301
  Receipt Date: 20120223
  Transmission Date: 20120608
  Serious: Yes (Hospitalization, Other)
  Sender: FDA-Public Use
  Company Number: GB-TEVA-324399ISR

PATIENT
  Sex: Male

DRUGS (5)
  1. ACETAMINOPHEN AND CODEINE PHOSPHATE [Concomitant]
     Indication: PAIN
  2. DOXAZOSIN MESYLATE [Suspect]
     Indication: HYPERTENSION
     Dates: start: 20110822, end: 20110801
  3. DOXAZOSIN MESYLATE [Suspect]
     Dates: start: 20110701, end: 20110701
  4. DOXAZOSIN MESYLATE [Suspect]
     Dates: start: 20110701, end: 20110822
  5. IBUPROFEN [Concomitant]

REACTIONS (8)
  - ARTHRITIS REACTIVE [None]
  - CIRCULATORY COLLAPSE [None]
  - WEIGHT DECREASED [None]
  - HAEMOGLOBIN DECREASED [None]
  - DYSGEUSIA [None]
  - MUSCLE SPASMS [None]
  - ARTHRALGIA [None]
  - PARALYSIS [None]
